FAERS Safety Report 12105497 (Version 2)
Quarter: 2016Q1

REPORT INFORMATION
  Report Type: Spontaneous
  Country: FR (occurrence: FR)
  Receive Date: 20160223
  Receipt Date: 20160225
  Transmission Date: 20160526
  Serious: Yes (Death)
  Sender: FDA-Public Use
  Company Number: PHHY2016FR023160

PATIENT
  Sex: Male

DRUGS (4)
  1. LAMIVUDINE. [Concomitant]
     Active Substance: LAMIVUDINE
     Indication: HIV INFECTION
     Route: 065
  2. CICLOSPORIN [Suspect]
     Active Substance: CYCLOSPORINE
     Indication: APLASTIC ANAEMIA
     Route: 065
  3. EFAVIRENZ [Concomitant]
     Active Substance: EFAVIRENZ
     Indication: HIV INFECTION
     Route: 065
  4. TENOFOVIR [Concomitant]
     Active Substance: TENOFOVIR
     Indication: HIV INFECTION
     Route: 065

REACTIONS (3)
  - Neutropenic infection [Fatal]
  - Product use issue [Unknown]
  - Drug ineffective [Unknown]
